FAERS Safety Report 6748463-0 (Version None)
Quarter: 2010Q2

REPORT INFORMATION
  Report Type: 
  Country: None (occurrence: None)
  Receive Date: 20100527
  Receipt Date: 20100527
  Transmission Date: 20101027
  Serious: No
  Sender: FDA-Public Use
  Company Number: None

PATIENT
  Age: 17 Year
  Sex: Female

DRUGS (1)
  1. GAMMAGARD LIQUID [Suspect]

REACTIONS (2)
  - PRURITUS [None]
  - URTICARIA [None]
